FAERS Safety Report 4778161-4 (Version None)
Quarter: 2005Q3

REPORT INFORMATION
  Report Type: 
  Country: None (occurrence: None)
  Receive Date: 20050923
  Receipt Date: 20050923
  Transmission Date: 20060218
  Serious: Yes (Other)
  Sender: FDA-Public Use
  Company Number: None

PATIENT
  Age: 69 Year
  Sex: Male
  Weight: 83.5 kg

DRUGS (9)
  1. SIMVASTATIN [Suspect]
  2. TAMSULOSIN HCL [Concomitant]
  3. CALCITONIN-SALMON [Concomitant]
  4. MONTELUKAST NA [Concomitant]
  5. OMEPRAZOLE [Concomitant]
  6. CALCIUM 250MG/VITAMIN D 125 [Concomitant]
  7. SYNTHROID [Concomitant]
  8. GABAPENTIN [Concomitant]
  9. SIMVASTATIN [Concomitant]

REACTIONS (1)
  - MYALGIA [None]
